FAERS Safety Report 4629302-0 (Version None)
Quarter: 2005Q2

REPORT INFORMATION
  Report Type: 
  Country: None (occurrence: None)
  Receive Date: 20050405
  Receipt Date: 20050405
  Transmission Date: 20051028
  Serious: Yes (Hospitalization)
  Sender: FDA-Public Use
  Company Number: None

PATIENT
  Age: 56 Year
  Sex: Female
  Weight: 61 kg

DRUGS (2)
  1. OXALIPLATIN 130 MG/M2 IV [Suspect]
     Indication: SMALL INTESTINE CARCINOMA METASTATIC
     Dosage: IV 130MG/M2
     Route: 042
     Dates: start: 20050311
  2. CAPECITABINE 1500MG/M2 X14DAYS [Suspect]
     Dosage: PO 1500MG/M2 X14 DAYS
     Route: 048

REACTIONS (4)
  - ANAEMIA [None]
  - DISEASE PROGRESSION [None]
  - HYPERBILIRUBINAEMIA [None]
  - HYPOKALAEMIA [None]
